FAERS Safety Report 16942720 (Version 4)
Quarter: 2021Q3

REPORT INFORMATION
  Report Type: Spontaneous
  Country: US (occurrence: US)
  Receive Date: 20191021
  Receipt Date: 20210725
  Transmission Date: 20211014
  Serious: Yes (Other)
  Sender: FDA-Public Use
  Company Number: US-009507513-1910USA010965

PATIENT
  Age: 74 Year
  Sex: Female

DRUGS (8)
  1. SYNTHROID [Concomitant]
     Active Substance: LEVOTHYROXINE SODIUM
  2. PROVENTIL [Suspect]
     Active Substance: ALBUTEROL
     Indication: ASTHMA
     Dosage: 3 TO 4 INHALATIONS DAILY
     Route: 055
  3. PROVENTIL [Suspect]
     Active Substance: ALBUTEROL
     Indication: CHRONIC OBSTRUCTIVE PULMONARY DISEASE
     Dosage: 3 TO 4 INHALATIONS DAILY
     Route: 055
     Dates: start: 201910
  4. LOSARTAN. [Concomitant]
     Active Substance: LOSARTAN
  5. PROVENTIL [Suspect]
     Active Substance: ALBUTEROL
     Dosage: 2 PUFFS EVERY AS NEEDED
  6. PROVENTIL [Suspect]
     Active Substance: ALBUTEROL
     Dosage: 3 TO 4 INHALATIONS DAILY
     Route: 055
  7. AMLODIPINE [Concomitant]
     Active Substance: AMLODIPINE BESYLATE
  8. HYDROCHLOROTHIAZIDE. [Concomitant]
     Active Substance: HYDROCHLOROTHIAZIDE

REACTIONS (10)
  - Left ventricular failure [Not Recovered/Not Resolved]
  - Incorrect dose administered by device [Unknown]
  - Sleep disorder [Recovered/Resolved]
  - Herpes zoster [Unknown]
  - Poor quality device used [Unknown]
  - Device delivery system issue [Unknown]
  - Product use in unapproved indication [Unknown]
  - Drug ineffective for unapproved indication [Unknown]
  - Drug ineffective [Unknown]
  - Panic reaction [Recovered/Resolved]

NARRATIVE: CASE EVENT DATE: 201907
